FAERS Safety Report 25549351 (Version 1)
Quarter: 2025Q3

REPORT INFORMATION
  Report Type: Spontaneous
  Country: US (occurrence: US)
  Receive Date: 20250714
  Receipt Date: 20250714
  Transmission Date: 20251021
  Serious: No
  Sender: INCYTE
  Company Number: US-INCYTE CORPORATION-2025IN007370

PATIENT
  Age: 63 Year

DRUGS (1)
  1. JAKAFI [Suspect]
     Active Substance: RUXOLITINIB
     Indication: Myeloproliferative neoplasm
     Dosage: 10 MILLIGRAM, BID

REACTIONS (5)
  - Off label use [Unknown]
  - Weight increased [Unknown]
  - Pain in extremity [Unknown]
  - Rectal discharge [Unknown]
  - Diarrhoea [Unknown]
